FAERS Safety Report 4707093-2 (Version None)
Quarter: 2005Q3

REPORT INFORMATION
  Report Type: 
  Country: None (occurrence: None)
  Receive Date: 20050701
  Receipt Date: 20050615
  Transmission Date: 20060218
  Serious: Yes (Death, Other)
  Sender: FDA-Public Use
  Company Number: MAG-2005-0000366

PATIENT
  Age: 74 Year
  Sex: Male

DRUGS (3)
  1. OXYCODONE HCL [Suspect]
     Dosage: SEE IMAGE
     Route: 048
  2. OXYCODONE HCL [Suspect]
     Dosage: SEE IMAGE
     Route: 048
  3. OXYCODONE HCL [Suspect]
     Dosage: SEE IMAGE
     Route: 048

REACTIONS (9)
  - BENIGN PROSTATIC HYPERPLASIA [None]
  - CONDITION AGGRAVATED [None]
  - DEPRESSION [None]
  - GASTRIC CANCER [None]
  - GLAUCOMA [None]
  - HEPATIC FUNCTION ABNORMAL [None]
  - INSOMNIA [None]
  - MALIGNANT NEOPLASM PROGRESSION [None]
  - POLLAKIURIA [None]
